FAERS Safety Report 21033107 (Version 2)
Quarter: 2022Q3

REPORT INFORMATION
  Report Type: Spontaneous
  Country: US (occurrence: US)
  Receive Date: 20220701
  Receipt Date: 20220707
  Transmission Date: 20221027
  Serious: Yes (Other)
  Sender: FDA-Public Use
  Company Number: US-SUNOVION-2022SUN001962

PATIENT
  Sex: Female

DRUGS (3)
  1. LATUDA [Suspect]
     Active Substance: LURASIDONE HYDROCHLORIDE
     Dosage: 20 MG
     Route: 048
  2. LATUDA [Suspect]
     Active Substance: LURASIDONE HYDROCHLORIDE
     Dosage: 40 MG (HALF 80MGTABL)
     Route: 048
  3. LATUDA [Suspect]
     Active Substance: LURASIDONE HYDROCHLORIDE
     Dosage: 80 MG
     Route: 048

REACTIONS (11)
  - Dementia [Unknown]
  - Haemorrhage [Unknown]
  - Major depression [Unknown]
  - Hallucination [Unknown]
  - Post-traumatic stress disorder [Unknown]
  - Cardiac disorder [Unknown]
  - Osteoarthritis [Unknown]
  - Drug ineffective [Unknown]
  - Panic attack [Unknown]
  - Wrong technique in product usage process [Unknown]
  - Off label use [Unknown]
